FAERS Safety Report 5053812-8 (Version None)
Quarter: 2006Q3

REPORT INFORMATION
  Report Type: 
  Country: None (occurrence: None)
  Receive Date: 20060718
  Receipt Date: 20060609
  Transmission Date: 20061208
  Serious: Yes (Hospitalization)
  Sender: FDA-Public Use
  Company Number: CA-GLAXOSMITHKLINE-A0608528A

PATIENT
  Age: 80 Year
  Sex: Male
  Weight: 63.5 kg

DRUGS (5)
  1. AVANDIA [Suspect]
     Indication: DRUG USE FOR UNKNOWN INDICATION
     Dosage: 4MG PER DAY
     Dates: start: 20010701, end: 20060606
  2. LASIX [Concomitant]
     Dosage: 20MG PER DAY
  3. ADALAT [Concomitant]
     Dosage: 60MG PER DAY
  4. FERROUS GLUCONATE [Concomitant]
     Dosage: 900MG PER DAY
  5. UNKNOWN MEDICATION [Concomitant]

REACTIONS (12)
  - CARDIAC FAILURE [None]
  - CARDIAC FAILURE CONGESTIVE [None]
  - DECREASED APPETITE [None]
  - DYSPNOEA EXERTIONAL [None]
  - FLUID OVERLOAD [None]
  - LOBAR PNEUMONIA [None]
  - NAUSEA [None]
  - OEDEMA PERIPHERAL [None]
  - PLEURAL EFFUSION [None]
  - RENAL FAILURE ACUTE [None]
  - RENAL FAILURE CHRONIC [None]
  - UPPER GASTROINTESTINAL HAEMORRHAGE [None]
